FAERS Safety Report 23199278 (Version 1)
Quarter: 2023Q4

REPORT INFORMATION
  Report Type: Spontaneous
  Country: US (occurrence: US)
  Receive Date: 20231117
  Receipt Date: 20231117
  Transmission Date: 20240110
  Serious: No
  Sender: FDA-Public Use
  Company Number: US-Stemline Therapeutics, Inc.-2023ST003684

PATIENT
  Age: 63 Year
  Sex: Female

DRUGS (1)
  1. ORSERDU [Suspect]
     Active Substance: ELACESTRANT
     Indication: Product use in unapproved indication
     Dosage: 345 MG, 1 TABLET, ONCE DAILY.
     Route: 048
     Dates: start: 20230930

REACTIONS (1)
  - Hot flush [Unknown]
